FAERS Safety Report 12068013 (Version 1)
Quarter: 2016Q1

REPORT INFORMATION
  Report Type: Spontaneous
  Country: US (occurrence: US)
  Receive Date: 20160211
  Receipt Date: 20160211
  Transmission Date: 20160526
  Serious: No
  Sender: FDA-Public Use
  Company Number: US-SMITH AND NEPHEW, INC-2015SMT00230

PATIENT
  Age: 53 Year
  Sex: Male
  Weight: 88.44 kg

DRUGS (3)
  1. ADDITIONAL MEDICATIONS (UNSPECIFIED) [Concomitant]
     Dosage: UNK
  2. REGRANEX [Suspect]
     Active Substance: BECAPLERMIN
     Indication: SKIN ULCER
     Dosage: UNK
     Route: 061
     Dates: start: 20150722, end: 20150722
  3. HEART MEDICATIONS (UNSPECIFIED) [Concomitant]
     Dosage: UNK

REACTIONS (4)
  - Inappropriate schedule of drug administration [Recovered/Resolved]
  - Blister [Unknown]
  - Off label use [Recovered/Resolved]
  - Pain in extremity [Recovered/Resolved]

NARRATIVE: CASE EVENT DATE: 201507
